FAERS Safety Report 5809743-6 (Version None)
Quarter: 2008Q3

REPORT INFORMATION
  Report Type: 
  Country: None (occurrence: None)
  Receive Date: 20080707
  Receipt Date: 20071121
  Transmission Date: 20090109
  Serious: No
  Sender: FDA-Public Use
  Company Number: 07H-163-0313576-00

PATIENT
  Age: 75 Year
  Sex: Female

DRUGS (1)
  1. MORPHINE SULFATE [Suspect]
     Indication: ANALGESIA
     Dosage: 30 ML AT 1MG EVERY HOUR, CONTINUOUS, INTRAVENOUS
     Route: 042
     Dates: start: 20071116, end: 20071116

REACTIONS (1)
  - SEDATION [None]
